FAERS Safety Report 9268827 (Version 2)
Quarter: 2013Q2

REPORT INFORMATION
  Report Type: Spontaneous
  Country: US (occurrence: US)
  Receive Date: 20130502
  Receipt Date: 20130618
  Transmission Date: 20140414
  Serious: Yes (Death, Life-Threatening, Hospitalization, Disabling)
  Sender: FDA-Public Use
  Company Number: US-ROXANE LABORATORIES, INC.-2013-RO-00651RO

PATIENT
  Age: 76 Year
  Sex: Female

DRUGS (7)
  1. DIGOXIN [Suspect]
     Indication: VENTRICULAR DYSFUNCTION
     Dosage: 0.125 MG
     Route: 048
  2. DIGOXIN [Suspect]
     Indication: CARDIAC FAILURE CONGESTIVE
  3. REVATIO [Suspect]
     Indication: PULMONARY ARTERIAL HYPERTENSION
     Dosage: 60 MG
     Dates: start: 20120601, end: 20130117
  4. AMIODARONE [Suspect]
  5. PROSTAGALEN [Suspect]
     Indication: PULMONARY ARTERIAL HYPERTENSION
     Route: 042
  6. VELETRI [Concomitant]
     Indication: PULMONARY ARTERIAL HYPERTENSION
     Dates: start: 201106, end: 20130117
  7. DOPAMINE [Concomitant]

REACTIONS (1)
  - Disease progression [Fatal]
